FAERS Safety Report 7614565 (Version 2)
Quarter: 2020Q3

REPORT INFORMATION
  Report Type: Report from Study
  Country: ZA (occurrence: ZA)
  Receive Date: 20101001
  Receipt Date: 20101015
  Transmission Date: 20201104
  Serious: Yes (Hospitalization)
  Sender: FDA-Public Use
  Company Number: ZA-WYE-H17756610

PATIENT
  Age: 58 Year
  Sex: Male
  Weight: 156.5 kg

DRUGS (3)
  1. INTERFERON ALFA NOS [Concomitant]
     Active Substance: INTERFERON ALFA-2A OR INTERFERON ALFA-2B
     Indication: RENAL CANCER METASTATIC
     Dosage: 9MU THREE TIMES WEEKLY
     Route: 058
     Dates: start: 20090527, end: 20101004
  2. BEVACIZUMAB. [Suspect]
     Active Substance: BEVACIZUMAB
     Indication: RENAL CANCER METASTATIC
     Route: 042
     Dates: start: 20090527, end: 20100915
  3. GLUCOPHAGE [Concomitant]
     Active Substance: METFORMIN HYDROCHLORIDE
     Indication: DIABETES MELLITUS
     Dosage: UNKNOWN
     Dates: start: 200705

REACTIONS (1)
  - Ascites [Recovered/Resolved]

NARRATIVE: CASE EVENT DATE: 20100616
